FAERS Safety Report 14880371 (Version 1)
Quarter: 2018Q2

REPORT INFORMATION
  Report Type: Spontaneous
  Country: FR (occurrence: FR)
  Receive Date: 20180511
  Receipt Date: 20180511
  Transmission Date: 20180711
  Serious: Yes (Hospitalization)
  Sender: FDA-Public Use
  Company Number: FR-PFIZER INC-2018187392

PATIENT
  Age: 95 Year
  Sex: Female

DRUGS (3)
  1. LYRICA [Suspect]
     Active Substance: PREGABALIN
     Indication: NEURALGIA
     Dosage: 50 MG, 1X/DAY
     Route: 048
     Dates: start: 20130530, end: 20180318
  2. ANTARENE CODEINE [Suspect]
     Active Substance: CODEINE PHOSPHATE\IBUPROFEN
     Indication: PAIN
     Dosage: 3 DF, 1X/DAY, [CODEINE PHOSPHATE HEMIHYDRATE 400 MG]/[IBUPROFEN 60 MG]
     Route: 048
     Dates: start: 20180316, end: 20180318
  3. SEROPLEX [Suspect]
     Active Substance: ESCITALOPRAM OXALATE
     Indication: DEPRESSION
     Dosage: 10 MG, 1X/DAY
     Route: 048
     Dates: end: 20180318

REACTIONS (3)
  - Faecaloma [Recovered/Resolved]
  - Faecal vomiting [Recovered/Resolved]
  - Constipation [Recovered/Resolved]

NARRATIVE: CASE EVENT DATE: 20180318
